FAERS Safety Report 10267750 (Version 2)
Quarter: 2014Q3

REPORT INFORMATION
  Report Type: Spontaneous
  Country: JP (occurrence: JP)
  Receive Date: 20140630
  Receipt Date: 20140804
  Transmission Date: 20150326
  Serious: Yes (Life-Threatening)
  Sender: FDA-Public Use
  Company Number: PHHY2014JP079876

PATIENT
  Age: 63 Year
  Sex: Female

DRUGS (2)
  1. MENOAID COMBIPTACH [Suspect]
     Active Substance: ESTRADIOL\NORETHINDRONE ACETATE
     Indication: HORMONE REPLACEMENT THERAPY
     Dosage: 1 DF, TWICE A WEEK
     Route: 062
     Dates: start: 20130318, end: 20130426
  2. MYSLEE [Concomitant]
     Active Substance: ZOLPIDEM TARTRATE
     Indication: INSOMNIA
     Dosage: 2 DF, DAY
     Route: 048
     Dates: start: 20101002, end: 20130426

REACTIONS (1)
  - Hepatobiliary cancer [Unknown]

NARRATIVE: CASE EVENT DATE: 20130701
